FAERS Safety Report 25642383 (Version 4)
Quarter: 2025Q4

REPORT INFORMATION
  Report Type: Spontaneous
  Country: JP (occurrence: JP)
  Receive Date: 20250805
  Receipt Date: 20251013
  Transmission Date: 20260119
  Serious: Yes (Other)
  Sender: NOVO NORDISK
  Company Number: JP-NOVOPROD-1491521

PATIENT
  Weight: 1.58 kg

DRUGS (10)
  1. FIASP [Suspect]
     Active Substance: INSULIN ASPART
     Indication: Gestational diabetes
     Dosage: 27 IU, QD
     Route: 064
     Dates: start: 20240314, end: 20240625
  2. VIMPAT [Concomitant]
     Active Substance: LACOSAMIDE
     Dosage: 300 MG, QD (TID AFTER EACH MEALS)
     Route: 064
     Dates: start: 2014
  3. CERCINE [Concomitant]
     Active Substance: DIAZEPAM
     Dosage: 3 MG, QD (2 MG IN THE EVENING, 6 MG BEFORE)
     Route: 064
     Dates: start: 2014
  4. MIYA-BM [Concomitant]
     Active Substance: CLOSTRIDIUM BUTYRICUM SPORES STRAIN M-55
     Dosage: UNK (3 TABLETS/DAY, TID AFTER EACH MEALS)
     Route: 064
     Dates: start: 20240127
  5. FOLIC ACID [Concomitant]
     Active Substance: FOLIC ACID
     Dosage: 5 MG, QD (AFTER BREAKFAST)
     Route: 064
     Dates: start: 20240205, end: 20240625
  6. MAGNESIUM OXIDE [Concomitant]
     Active Substance: MAGNESIUM OXIDE
     Dosage: 3 TABLETS/DAY, TID AFTER EACH MEALS
     Route: 064
     Dates: start: 20240301, end: 20240625
  7. ISOXSUPRINE HYDROCHLORIDE [Concomitant]
     Active Substance: ISOXSUPRINE HYDROCHLORIDE
     Dosage: 80 MG, QD
     Route: 064
     Dates: start: 20240309, end: 20240625
  8. FERRIC CITRATE ANHYDROUS [Concomitant]
     Active Substance: FERRIC CITRATE ANHYDROUS
     Dosage: 2 TABS AFTER BREAKFAST
     Route: 064
     Dates: start: 20240408, end: 20240412
  9. CEFACLOR [Concomitant]
     Active Substance: CEFACLOR
     Dosage: 3 CAPSULES/DAY, TID AFTER EACH MEALS
     Route: 064
     Dates: start: 20240408, end: 20240412
  10. FLAGYL [Concomitant]
     Active Substance: METRONIDAZOLE\METRONIDAZOLE HYDROCHLORIDE
     Dosage: 250 MG, QD
     Route: 064
     Dates: start: 20240329, end: 20240408

REACTIONS (4)
  - Jaundice neonatal [Recovered/Resolved]
  - Hypoglycaemia neonatal [Recovered/Resolved]
  - Premature baby [Unknown]
  - Foetal exposure during pregnancy [Recovered/Resolved]

NARRATIVE: CASE EVENT DATE: 20240314
